FAERS Safety Report 9694778 (Version 1)
Quarter: 2013Q4

REPORT INFORMATION
  Report Type: Spontaneous
  Country: US (occurrence: US)
  Receive Date: 20131119
  Receipt Date: 20131119
  Transmission Date: 20140711
  Serious: No
  Sender: FDA-Public Use
  Company Number: US-BIOGENIDEC-2013BI109486

PATIENT
  Age: 55 Year
  Sex: Female

DRUGS (2)
  1. AVONEX [Suspect]
     Indication: MULTIPLE SCLEROSIS
     Route: 030
     Dates: start: 20011001, end: 20081001
  2. AVONEX [Suspect]
     Indication: MULTIPLE SCLEROSIS
     Route: 030
     Dates: start: 20090727

REACTIONS (4)
  - Cognitive disorder [Unknown]
  - Feeling cold [Not Recovered/Not Resolved]
  - Adverse event [Not Recovered/Not Resolved]
  - Pain in extremity [Not Recovered/Not Resolved]
